FAERS Safety Report 6186149-4 (Version None)
Quarter: 2009Q2

REPORT INFORMATION
  Report Type: 
  Country: None (occurrence: None)
  Receive Date: 20090511
  Receipt Date: 20080915
  Transmission Date: 20091009
  Serious: No
  Sender: FDA-Public Use
  Company Number: GB-BAXTER-2008BH009717

PATIENT

DRUGS (1)
  1. HEPARIN SODIUM 1,000 UNITS AND SODIUM CHLORIDE 0.9% [Suspect]
     Indication: ANTICOAGULANT THERAPY
     Route: 065

REACTIONS (1)
  - DRUG INEFFECTIVE [None]
